FAERS Safety Report 5627641-8 (Version None)
Quarter: 2008Q1

REPORT INFORMATION
  Report Type: 
  Country: None (occurrence: None)
  Receive Date: 20080215
  Receipt Date: 20080211
  Transmission Date: 20080703
  Serious: Yes (Hospitalization, Other)
  Sender: FDA-Public Use
  Company Number: US-WYE-H02560808

PATIENT
  Sex: Male
  Weight: 81.72 kg

DRUGS (2)
  1. RAPAMUNE [Suspect]
     Indication: PROPHYLAXIS AGAINST TRANSPLANT REJECTION
     Route: 048
     Dates: start: 20010801, end: 20080128
  2. RAPAMUNE [Suspect]
     Route: 048
     Dates: start: 20080131

REACTIONS (10)
  - ANAEMIA [None]
  - DERMATITIS ACNEIFORM [None]
  - FATIGUE [None]
  - IMMUNOSUPPRESSANT DRUG LEVEL INCREASED [None]
  - LOCALISED OEDEMA [None]
  - OEDEMA PERIPHERAL [None]
  - PAIN IN EXTREMITY [None]
  - VIRAL DIARRHOEA [None]
  - VOMITING [None]
  - WEIGHT DECREASED [None]
